FAERS Safety Report 5419478-X (Version None)
Quarter: 2007Q3

REPORT INFORMATION
  Report Type: 
  Country: None (occurrence: None)
  Receive Date: 20070817
  Receipt Date: 20070817
  Transmission Date: 20080115
  Serious: No
  Sender: FDA-Public Use
  Company Number: None

PATIENT
  Sex: Female
  Weight: 59 kg

DRUGS (1)
  1. CEFEPIME [Suspect]
     Indication: ENTEROBACTER INFECTION
     Dosage: 2GM Q12H IV
     Route: 042
     Dates: start: 20070812, end: 20070813

REACTIONS (1)
  - MENTAL STATUS CHANGES [None]
